FAERS Safety Report 9402805 (Version 2)
Quarter: 2013Q3

REPORT INFORMATION
  Report Type: Spontaneous
  Country: US (occurrence: US)
  Receive Date: 20130716
  Receipt Date: 20130722
  Transmission Date: 20140515
  Serious: Yes (Other)
  Sender: FDA-Public Use
  Company Number: US-PFIZER INC-2013206117

PATIENT
  Age: 60 Year
  Sex: Female
  Weight: 73.47 kg

DRUGS (7)
  1. PROTONIX [Suspect]
     Indication: GASTROOESOPHAGEAL REFLUX DISEASE
     Dosage: 40 MG, DAILY
     Route: 048
  2. PROTONIX [Suspect]
     Dosage: 40 MG, 2X/DAY
     Route: 048
  3. LOTENSIN [Suspect]
     Indication: BLOOD PRESSURE ABNORMAL
     Dosage: UNK
  4. RANITIDINE [Suspect]
     Indication: GASTROOESOPHAGEAL REFLUX DISEASE
     Dosage: 300 MG, DAILY
     Route: 048
  5. GLUMETZA [Concomitant]
     Indication: TYPE 2 DIABETES MELLITUS
     Dosage: 1000 MG, DAILY
  6. GLIMEPIRIDE [Concomitant]
     Indication: TYPE 2 DIABETES MELLITUS
     Dosage: 4 MG, DAILY
  7. VITAMIN D [Concomitant]
     Dosage: 1.25 MG, DAILY

REACTIONS (12)
  - Lung neoplasm malignant [Unknown]
  - Hallucination [Unknown]
  - Vision blurred [Unknown]
  - Dizziness [Unknown]
  - Headache [Unknown]
  - Constipation [Unknown]
  - Diarrhoea [Unknown]
  - Breast enlargement [Unknown]
  - Fatigue [Unknown]
  - Pain in extremity [Unknown]
  - Alopecia [Unknown]
  - Drug ineffective [Unknown]
